FAERS Safety Report 9757692 (Version 3)
Quarter: 2014Q3

REPORT INFORMATION
  Report Type: Spontaneous
  Country: FR (occurrence: FR)
  Receive Date: 20131216
  Receipt Date: 20140702
  Transmission Date: 20150326
  Serious: Yes (Life-Threatening, Hospitalization, Other)
  Sender: FDA-Public Use
  Company Number: FR-BRISTOL-MYERS SQUIBB COMPANY-19888734

PATIENT
  Age: 40 Year
  Sex: Male

DRUGS (9)
  1. BICNU [Suspect]
     Active Substance: CARMUSTINE
     Indication: LYMPHOMA
     Route: 042
     Dates: start: 20131004
  2. BLEOMYCINE BELLON [Suspect]
     Active Substance: BLEOMYCIN SULFATE
     Indication: LYMPHOMA
     Dosage: 18SEP2013
     Route: 042
     Dates: start: 20130821
  3. DOXORUBICIN [Suspect]
     Active Substance: DOXORUBICIN
     Indication: LYMPHOMA
     Dosage: 10-SEP-2013
     Dates: start: 20130814
  4. NATULAN [Suspect]
     Active Substance: PROCARBAZINE HYDROCHLORIDE
     Indication: LYMPHOMA
     Dosage: 14-AUG-2013 TO 20-AUG-2013 ?10-SEP-2013 TO 16-SEP-2013
     Route: 048
     Dates: start: 20130814, end: 20130916
  5. CYTARABINE. [Suspect]
     Active Substance: CYTARABINE
     Indication: LYMPHOMA
     Route: 042
     Dates: start: 20131005, end: 20131008
  6. ENDOXAN [Suspect]
     Active Substance: CYCLOPHOSPHAMIDE
     Indication: LYMPHOMA
     Dosage: 10-SEP-2013
     Route: 042
     Dates: start: 20130814
  7. VINCRISTINE SULFATE. [Suspect]
     Active Substance: VINCRISTINE SULFATE
     Indication: LYMPHOMA
     Dosage: 18SEP2013
     Route: 042
     Dates: start: 20130821
  8. ALKERAN [Suspect]
     Active Substance: MELPHALAN
     Indication: LYMPHOMA
     Route: 042
     Dates: start: 20131009
  9. ETOPOPHOS [Suspect]
     Active Substance: ETOPOSIDE PHOSPHATE
     Indication: LYMPHOMA
     Dosage: 14 TO 16AUG2013?10 TO 12SEP2013?05OCT2013 TO 08OCT2013?POWDER FOR INJECTION
     Dates: start: 20130814, end: 20131008

REACTIONS (6)
  - Lymphadenopathy mediastinal [None]
  - Organising pneumonia [Recovered/Resolved]
  - Sepsis [Recovering/Resolving]
  - Pleural effusion [None]
  - Pancytopenia [Recovering/Resolving]
  - Hilar lymphadenopathy [None]

NARRATIVE: CASE EVENT DATE: 20131016
